FAERS Safety Report 23481636 (Version 5)
Quarter: 2024Q2

REPORT INFORMATION
  Report Type: Spontaneous
  Country: US (occurrence: US)
  Receive Date: 20240205
  Receipt Date: 20240531
  Transmission Date: 20240716
  Serious: Yes (Hospitalization, Other)
  Sender: FDA-Public Use
  Company Number: US-INCYTE CORPORATION-2024IN001126

PATIENT

DRUGS (31)
  1. JAKAFI [Suspect]
     Active Substance: RUXOLITINIB
     Indication: Myelofibrosis
     Dosage: 5 MILLIGRAM, BID
     Route: 048
     Dates: start: 20220405, end: 20240122
  2. JAKAFI [Suspect]
     Active Substance: RUXOLITINIB
     Dosage: 5 MILLIGRAM, BID
     Route: 048
     Dates: start: 20240129
  3. JAKAFI [Suspect]
     Active Substance: RUXOLITINIB
     Dosage: 10 MILLIGRAM, QOD (EVERY 2 DAYS)
     Route: 048
     Dates: start: 20220405
  4. JAKAFI [Suspect]
     Active Substance: RUXOLITINIB
     Dosage: 5 MILLIGRAM, QOD (EVERY 2 DAYS)
     Route: 048
     Dates: start: 20220405
  5. NAVITOCLAX [Suspect]
     Active Substance: NAVITOCLAX
     Indication: Myelofibrosis
     Dosage: 100 MILLIGRAM, QD
     Route: 048
     Dates: start: 20220405, end: 20240122
  6. NAVITOCLAX [Suspect]
     Active Substance: NAVITOCLAX
     Dosage: 100 MILLIGRAM, QD
     Route: 048
     Dates: start: 20240129
  7. NAVITOCLAX [Suspect]
     Active Substance: NAVITOCLAX
     Dosage: 100 MILLIGRAM, QD
     Route: 048
     Dates: start: 20220405
  8. NAVITOCLAX [Suspect]
     Active Substance: NAVITOCLAX
     Dosage: 100 MILLIGRAM, QD
     Route: 048
     Dates: start: 20220405, end: 20240316
  9. NAVITOCLAX [Suspect]
     Active Substance: NAVITOCLAX
     Dosage: 100 MILLIGRAM, QD
     Route: 048
     Dates: start: 20240325
  10. CYANOCOBALAMIN [Concomitant]
     Active Substance: CYANOCOBALAMIN
     Indication: Supplementation therapy
     Dosage: 500 MICROGRAM, QOD (EVERY 2 DAYS)
     Route: 065
     Dates: start: 20210729
  11. CHOLECALCIFEROL [Concomitant]
     Active Substance: CHOLECALCIFEROL
     Indication: Supplementation therapy
     Dosage: 25 MICROGRAM, QOD (EVERY 2 DAYS)
     Route: 065
     Dates: start: 20210729
  12. ACETAMINOPHEN\ASCORBIC ACID [Concomitant]
     Active Substance: ACETAMINOPHEN\ASCORBIC ACID
     Indication: Thrombosis prophylaxis
     Dosage: 81 MILLIGRAM, QD
     Route: 065
     Dates: start: 20200602
  13. PROAIR HFA [Concomitant]
     Active Substance: ALBUTEROL SULFATE
     Indication: Asthma
     Dosage: 90 MICROGRAM, Q4H
     Route: 065
     Dates: start: 20161212
  14. LOVASTATIN [Concomitant]
     Active Substance: LOVASTATIN
     Indication: Hyperlipidaemia
     Dosage: 40 MILLIGRAM, QD
     Route: 065
     Dates: start: 20161212
  15. FLOVENT HFA [Concomitant]
     Active Substance: FLUTICASONE PROPIONATE
     Indication: Asthma
     Dosage: 110 MICROGRAM, QD
     Route: 065
     Dates: start: 20161212
  16. TIMOLOL [TIMOLOL MALEATE] [Concomitant]
     Indication: Glaucoma
     Dosage: 10 MILLILITER, QD
     Route: 065
     Dates: start: 20210709
  17. TIMOLOL [TIMOLOL MALEATE] [Concomitant]
     Dosage: 1 GTT DROPS, BID
     Route: 065
     Dates: start: 20220902
  18. BIMATOPROST [Concomitant]
     Active Substance: BIMATOPROST
     Indication: Glaucoma
     Dosage: 0.01 PERCENT, QD
     Route: 065
     Dates: start: 20211221
  19. ACYCLOVIR [Concomitant]
     Active Substance: ACYCLOVIR
     Indication: Antiviral prophylaxis
     Dosage: 200/5 MG/ML, BID
     Route: 065
     Dates: start: 20220404
  20. ALLOPURINOL SODIUM [Concomitant]
     Active Substance: ALLOPURINOL SODIUM
     Indication: Hyperuricaemia
     Dosage: 300 MILLIGRAM, QD
     Route: 065
     Dates: start: 20220405
  21. ALLOPURINOL SODIUM [Concomitant]
     Active Substance: ALLOPURINOL SODIUM
     Dosage: 200 MILLIGRAM, QD
     Route: 065
     Dates: start: 20220923
  22. OCEAN SALINE NASAL SPRAY [Concomitant]
     Active Substance: SODIUM CHLORIDE
     Indication: Nasal congestion
     Dosage: 0.65 PERCENT, AS NECESSARY
     Route: 065
     Dates: start: 20220426
  23. AFRIN [Concomitant]
     Active Substance: OXYMETAZOLINE
     Indication: Epistaxis
     Dosage: 0.05 PERCENT, QOD (EVERY 2 DAYS)
     Route: 065
     Dates: start: 20220426
  24. LUMIGAN [Concomitant]
     Active Substance: BIMATOPROST
     Indication: Glaucoma
     Dosage: 1 GTT DROPS, BID
     Route: 065
     Dates: start: 20220902
  25. LACTATED RINGERS SOLUTION [Concomitant]
     Active Substance: CALCIUM CHLORIDE\POTASSIUM CHLORIDE\SODIUM CHLORIDE\SODIUM LACTATE
     Indication: Fluid replacement
     Dosage: 1000 MILLILITER, QD
     Route: 065
     Dates: start: 20240124
  26. HYDROMORPHONE HYDROCHLORIDE [Concomitant]
     Active Substance: HYDROMORPHONE HYDROCHLORIDE
     Indication: Pain
     Dosage: 3 MILLIGRAM, BID
     Route: 065
     Dates: start: 20240124
  27. ONDANSETRON HYDROCHLORIDE [Concomitant]
     Active Substance: ONDANSETRON HYDROCHLORIDE
     Indication: Nausea
     Dosage: 8 MILLIGRAM, TID
     Route: 065
     Dates: start: 20240127
  28. LISINOPRIL [Concomitant]
     Active Substance: LISINOPRIL
     Indication: Blood pressure management
     Dosage: 30 MILLIGRAM, QD
     Route: 065
     Dates: start: 20220311
  29. LISINOPRIL [Concomitant]
     Active Substance: LISINOPRIL
     Dosage: 5 MILLIGRAM, QD
     Route: 065
     Dates: start: 20240129
  30. BUPRENORPHINE HYDROCHLORIDE [Concomitant]
     Active Substance: BUPRENORPHINE HYDROCHLORIDE
     Indication: Pain
     Dosage: 1 PATCH EVERY 1 WEEK
     Route: 065
     Dates: start: 20240208
  31. MORPHINE SULFATE [Concomitant]
     Active Substance: MORPHINE SULFATE
     Indication: Pain
     Dosage: 15 MILLIGRAM, BID
     Route: 065
     Dates: start: 20240213

REACTIONS (14)
  - Escherichia urinary tract infection [Recovered/Resolved]
  - Pneumonia [Recovered/Resolved]
  - Acute kidney injury [Recovered/Resolved]
  - Confusional state [Recovered/Resolved]
  - Squamous cell carcinoma of skin [Unknown]
  - Deafness bilateral [Unknown]
  - Urosepsis [Unknown]
  - Osteoarthritis [Unknown]
  - Iron deficiency anaemia [Unknown]
  - Irritable bowel syndrome [Unknown]
  - Osteoporosis [Unknown]
  - Seasonal allergy [Unknown]
  - Asthma [Unknown]
  - Hypertension [Unknown]

NARRATIVE: CASE EVENT DATE: 20210101
